FAERS Safety Report 9177591 (Version 1)
Quarter: 2012Q4

REPORT INFORMATION
  Report Type: 
  Country: US (occurrence: US)
  Receive Date: 20121004
  Receipt Date: 20121004
  Transmission Date: 20130627
  Serious: Yes (Other)
  Sender: FDA-Public Use
  Company Number: US-RB-039004-12

PATIENT
  Sex: Female

DRUGS (4)
  1. SUBOXONE TABLETS [Suspect]
     Indication: DRUG DEPENDENCE
     Route: 060
     Dates: start: 2010, end: 2010
  2. SUBOXONE FILM [Suspect]
     Indication: DRUG DEPENDENCE
     Route: 060
     Dates: start: 2010, end: 2011
  3. BUPRENORPHINE [Suspect]
     Indication: DRUG DEPENDENCE
     Route: 060
     Dates: start: 201109
  4. SUBOXONE UNSPECIFIED [Suspect]
     Indication: DRUG DEPENDENCE
     Dosage: Therapy start date: After 1 month of pregnancy
     Route: 065
     Dates: start: 2011

REACTIONS (4)
  - Foetal heart rate decreased [Recovered/Resolved]
  - Exposure during pregnancy [Recovered/Resolved]
  - Pregnancy [None]
  - Postmature baby [None]
